FAERS Safety Report 20315420 (Version 3)
Quarter: 2022Q1

REPORT INFORMATION
  Report Type: Report from Study
  Country: US (occurrence: None)
  Receive Date: 20220110
  Receipt Date: 20220216
  Transmission Date: 20220423
  Serious: Yes (Hospitalization, Other)
  Sender: FDA-Public Use
  Company Number: US-Eisai Medical Research-EC-2022-106262

PATIENT
  Age: 94 Year
  Sex: Male

DRUGS (9)
  1. LENVIMA [Suspect]
     Active Substance: LENVATINIB
     Indication: Product used for unknown indication
     Dosage: DOSE UNKNOWN
     Route: 048
  2. LENVIMA [Suspect]
     Active Substance: LENVATINIB
     Dosage: ALTERNATE 1 CAPSULE (12 MG) ONCE DAILY FOR 1 WEEK AND THEN 3 CAPSULES (36 MG) ONCE DAILY FOR 1 WEEK
     Route: 048
     Dates: start: 2021, end: 20211117
  3. LENVIMA [Suspect]
     Active Substance: LENVATINIB
     Dosage: TAKING 2 CAPSULES ALTERNATING WITH 1 CAPSULE
     Route: 048
     Dates: start: 2021, end: 2021
  4. LENVIMA [Suspect]
     Active Substance: LENVATINIB
     Route: 048
     Dates: start: 20220101, end: 2022
  5. LENVIMA [Suspect]
     Active Substance: LENVATINIB
     Route: 048
     Dates: start: 2022
  6. AMIODARONE [Suspect]
     Active Substance: AMIODARONE
     Indication: Product used for unknown indication
     Dosage: DOSE AND FREQUENCY UNKNOWN
     Route: 048
  7. AMIODARONE [Suspect]
     Active Substance: AMIODARONE
     Dosage: ALTERNATE 1 CAPSULE (12 MG) ONCE DAILY FOR 1 WEEK AND THEN 3 CAPSULES (36 MG) ONCE DAILY FOR 1 WEEK
     Route: 048
     Dates: start: 2021, end: 20211117
  8. AMIODARONE [Suspect]
     Active Substance: AMIODARONE
     Dosage: TAKING 2 CAPSULES ALTERNATING WITH 1 CAPSULE
     Route: 048
     Dates: start: 2021, end: 2021
  9. AMIODARONE [Suspect]
     Active Substance: AMIODARONE
     Route: 048
     Dates: start: 2021

REACTIONS (3)
  - Atrial flutter [Recovering/Resolving]
  - Abdominal pain [Recovering/Resolving]
  - Malaise [Recovering/Resolving]

NARRATIVE: CASE EVENT DATE: 20211201
